FAERS Safety Report 7277323-4 (Version None)
Quarter: 2011Q1

REPORT INFORMATION
  Report Type: 
  Country: None (occurrence: None)
  Receive Date: 20110131
  Receipt Date: 20110119
  Transmission Date: 20110831
  Serious: Yes (Other)
  Sender: FDA-Public Use
  Company Number: 7036927

PATIENT
  Sex: Female

DRUGS (4)
  1. AVLOCARDYL (PROPRANOLOL) (40 MG, TABLET) (PROPRANOLOL) [Suspect]
     Indication: PRODUCT USED FOR UNKNOWN INDICATION
     Dosage: 2 DF ORAL
     Route: 048
  2. MEDIATOR (BENFLUOREX HYDROCHLORIDE) (BENFLUOREX HYDROCHLORIDE) [Suspect]
     Indication: PRODUCT USED FOR UNKNOWN INDICATION
     Dosage: 3 DF ORAL
     Route: 048
     Dates: start: 20080101, end: 20080601
  3. LEVOTHYROX (LEVOTHYROX SODIUM) (LEVOTHYROXINE SODIUM) [Suspect]
     Indication: PRODUCT USED FOR UNKNOWN INDICATION
     Dosage: ORAL
     Route: 048
  4. LAROXYL ROCHE (AMITRIPTYLINE HYDROCHLORIDE) (40 MILLIGRAM/MILLILITERS, [Suspect]
     Indication: PRODUCT USED FOR UNKNOWN INDICATION
     Dosage: 18 DF ORAL
     Route: 048

REACTIONS (5)
  - DYSPNOEA [None]
  - MITRAL VALVE INCOMPETENCE [None]
  - COUGH [None]
  - PHLEBITIS [None]
  - PULMONARY EMBOLISM [None]
